FAERS Safety Report 5383661-2 (Version None)
Quarter: 2007Q3

REPORT INFORMATION
  Report Type: 
  Country: None (occurrence: None)
  Receive Date: 20070706
  Receipt Date: 20070626
  Transmission Date: 20080115
  Serious: Yes (Other)
  Sender: FDA-Public Use
  Company Number: TPA2007A00880

PATIENT
  Sex: Female
  Weight: 47.6277 kg

DRUGS (2)
  1. ROZEREM [Suspect]
     Dosage: PER ORAL
     Route: 048
  2. ANTIHYPERTENSIVE (ANTIHYPERTENSIVES) [Concomitant]

REACTIONS (3)
  - ADRENAL INSUFFICIENCY [None]
  - ADRENAL NEOPLASM [None]
  - BLOOD CORTICOTROPHIN INCREASED [None]
